FAERS Safety Report 21281170 (Version 1)
Quarter: 2022Q3

REPORT INFORMATION
  Report Type: Spontaneous
  Country: TH (occurrence: TH)
  Receive Date: 20220901
  Receipt Date: 20220901
  Transmission Date: 20221027
  Serious: Yes (Hospitalization)
  Sender: FDA-Public Use
  Company Number: TH-STRIDES ARCOLAB LIMITED-2022SP010852

PATIENT
  Age: 2 Year
  Sex: Male

DRUGS (7)
  1. MONTELUKAST [Suspect]
     Active Substance: MONTELUKAST SODIUM
     Indication: Bronchial hyperreactivity
     Dosage: UNK; FEW DOSES
     Route: 065
  2. MONTELUKAST [Suspect]
     Active Substance: MONTELUKAST SODIUM
     Dosage: 4 MILLIGRAM; PER DAY; (GRANULES)
     Route: 065
  3. MONTELUKAST [Suspect]
     Active Substance: MONTELUKAST SODIUM
     Dosage: 5 MILLIGRAM; PER DAY; (TABLET)
     Route: 065
  4. SALMETEROL [Suspect]
     Active Substance: SALMETEROL
     Indication: Bronchial hyperreactivity
     Dosage: UNK, QD; (1 PUFF VIA NEBULISER); RESPIRATORY (INHALATION)
  5. FLUTICASONE [Suspect]
     Active Substance: FLUTICASONE
     Indication: Bronchial hyperreactivity
     Dosage: UNK, QD; 1 PUFF VIA NEBULISER; RESPIRATORY (INHALATION)
  6. AMPHOTERICIN B [Concomitant]
     Active Substance: AMPHOTERICIN B
     Indication: Product used for unknown indication
     Dosage: UNK
     Route: 065
  7. BUDESONIDE [Concomitant]
     Active Substance: BUDESONIDE
     Indication: Bronchial hyperreactivity
     Dosage: UNK

REACTIONS (1)
  - Apathy [Recovered/Resolved]
